FAERS Safety Report 5247630-5 (Version None)
Quarter: 2007Q1

REPORT INFORMATION
  Report Type: 
  Country: None (occurrence: None)
  Receive Date: 20070223
  Receipt Date: 20070223
  Transmission Date: 20070707
  Serious: Yes (Other)
  Sender: FDA-Public Use
  Company Number: None

PATIENT
  Age: 53 Year
  Sex: Male
  Weight: 97.1 kg

DRUGS (10)
  1. HYDRALAZINE HCL [Suspect]
     Dosage: 25MG, QID, PO
     Route: 048
     Dates: start: 20061121, end: 20061122
  2. HYDRALAZINE HCL [Suspect]
     Dosage: 10MG/0.5.X 1 DOSE, IV PUSH
     Route: 042
     Dates: start: 20061121, end: 20061121
  3. GLYBURIDE [Concomitant]
  4. METFORMIN HCL [Concomitant]
  5. ZOCOR [Concomitant]
  6. NIFEDIPINE [Concomitant]
  7. POTASSIUM CHLORIDE [Concomitant]
  8. ASPIRIN [Concomitant]
  9. INSULIN REG HUMAN 100 UNIT/ML NOVOLIN R [Concomitant]
  10. HEPARIN NA, PORK INJ.SOLN [Concomitant]

REACTIONS (3)
  - ANAPHYLACTIC REACTION [None]
  - DYSPNOEA [None]
  - SWELLING [None]
